FAERS Safety Report 15753023 (Version 1)
Quarter: 2018Q4

REPORT INFORMATION
  Report Type: Spontaneous
  Country: ES (occurrence: ES)
  Receive Date: 20181221
  Receipt Date: 20181221
  Transmission Date: 20190205
  Serious: Yes (Hospitalization)
  Sender: FDA-Public Use
  Company Number: ES-TEVA-2018-ES-988977

PATIENT
  Age: 51 Year
  Sex: Male
  Weight: 57 kg

DRUGS (4)
  1. POLARAMINE /00043702/ [Concomitant]
     Indication: PREMEDICATION
     Dates: start: 20100419, end: 20100419
  2. PACLITAXEL. [Suspect]
     Active Substance: PACLITAXEL
     Dosage: 1 CYCLE
     Route: 042
     Dates: start: 20100419, end: 20100419
  3. DECADRAN /00016002/ [Concomitant]
     Indication: PREMEDICATION
     Dates: start: 20100419, end: 20100419
  4. RANITIDINE. [Concomitant]
     Active Substance: RANITIDINE
     Indication: PREMEDICATION
     Dates: start: 20100419, end: 20100419

REACTIONS (3)
  - Tachycardia [Recovered/Resolved]
  - Bronchospasm [Recovered/Resolved]
  - Chest pain [Recovered/Resolved]

NARRATIVE: CASE EVENT DATE: 20100419
